FAERS Safety Report 12218418 (Version 11)
Quarter: 2018Q1

REPORT INFORMATION
  Report Type: Report from Study
  Country: BR (occurrence: BR)
  Receive Date: 20160329
  Receipt Date: 20180308
  Transmission Date: 20180508
  Serious: Yes (Death, Life-Threatening, Hospitalization, Other)
  Sender: FDA-Public Use
  Company Number: PHHY2016BR036066

PATIENT
  Age: 14 Year
  Sex: Female
  Weight: 50 kg

DRUGS (8)
  1. EXJADE [Suspect]
     Active Substance: DEFERASIROX
     Dosage: 1000 MG, UNK
     Route: 048
  2. VALPROIC ACID. [Concomitant]
     Active Substance: VALPROIC ACID
     Indication: EPILEPSY
     Dosage: 500 MG, QD
     Route: 048
     Dates: start: 201402
  3. VALPROIC ACID. [Concomitant]
     Active Substance: VALPROIC ACID
     Dosage: 500 MG (2 TABS OF 250 MG), QD
     Route: 048
     Dates: start: 2014
  4. EXJADE [Suspect]
     Active Substance: DEFERASIROX
     Indication: SICKLE CELL ANAEMIA
     Dosage: 25 MG/KG, QD (2 DF OF 500 MG AND 1 DF OF 250 MG, 1000 MG)
     Route: 048
     Dates: start: 201410
  5. CARBAMAZEPINE. [Concomitant]
     Active Substance: CARBAMAZEPINE
     Indication: SEIZURE
  6. EXJADE [Suspect]
     Active Substance: DEFERASIROX
     Dosage: 500 MG, (2 DF OF 500 MG AND 1 DF OF 250 MG, 1000 MG)
     Route: 065
     Dates: start: 2015
  7. FOLIC ACID. [Concomitant]
     Active Substance: FOLIC ACID
     Indication: SICKLE CELL ANAEMIA
     Dosage: 5 MG, QD
     Route: 048
  8. CARBAMAZEPINE. [Concomitant]
     Active Substance: CARBAMAZEPINE
     Indication: EPILEPSY
     Dosage: 500 MG (250 MG 2 TABS), QD
     Route: 048
     Dates: start: 201402

REACTIONS (19)
  - Liver disorder [Fatal]
  - Abdominal pain [Unknown]
  - Spleen disorder [Fatal]
  - Pneumonia [Recovered/Resolved]
  - Back pain [Unknown]
  - Pain [Recovered/Resolved]
  - Syncope [Recovered/Resolved]
  - Swelling [Unknown]
  - Aspiration bronchial [Recovered/Resolved]
  - Loss of consciousness [Unknown]
  - Constipation [Not Recovered/Not Resolved]
  - Depression [Recovered/Resolved]
  - Chest pain [Unknown]
  - Insomnia [Not Recovered/Not Resolved]
  - Anaemia [Fatal]
  - Suicidal behaviour [Recovered/Resolved]
  - Pain in extremity [Unknown]
  - Arthralgia [Recovered/Resolved]
  - Immobile [Unknown]

NARRATIVE: CASE EVENT DATE: 20160816
